FAERS Safety Report 9349264 (Version 1)
Quarter: 2013Q2

REPORT INFORMATION
  Report Type: Spontaneous
  Country: US (occurrence: US)
  Receive Date: 20130614
  Receipt Date: 20130614
  Transmission Date: 20140414
  Serious: Yes (Other)
  Sender: FDA-Public Use
  Company Number: US-PFIZER INC-2013175822

PATIENT
  Age: 22 Year
  Sex: Male

DRUGS (1)
  1. DEPO-TESTOSTERONE [Suspect]
     Dosage: UNK, TWO TIMES A MONTH

REACTIONS (4)
  - Brain neoplasm [Unknown]
  - Arthropathy [Unknown]
  - Injection site infection [Unknown]
  - Injection site pain [Unknown]
